FAERS Safety Report 6139268-2 (Version None)
Quarter: 2009Q2

REPORT INFORMATION
  Report Type: 
  Country: None (occurrence: None)
  Receive Date: 20090401
  Receipt Date: 20090324
  Transmission Date: 20091009
  Serious: Yes (Hospitalization)
  Sender: FDA-Public Use
  Company Number: US-BIOGENIDEC-2009BI008172

PATIENT
  Age: 47 Year
  Sex: Female
  Weight: 53 kg

DRUGS (1)
  1. TYSABRI [Suspect]
     Indication: MULTIPLE SCLEROSIS
     Route: 042
     Dates: start: 20080728

REACTIONS (4)
  - HAEMORRHAGE [None]
  - HYSTERECTOMY [None]
  - PROCEDURAL PAIN [None]
  - UTERINE LEIOMYOMA [None]
